FAERS Safety Report 19416114 (Version 1)
Quarter: 2021Q2

REPORT INFORMATION
  Report Type: Report from Study
  Country: BR (occurrence: BR)
  Receive Date: 20210614
  Receipt Date: 20210614
  Transmission Date: 20210717
  Serious: Yes (Other)
  Sender: FDA-Public Use
  Company Number: BR-TAKEDA-2021TUS036725

PATIENT
  Sex: Male

DRUGS (1)
  1. HEMO?8R [Suspect]
     Active Substance: ANTIHEMOPHILIC FACTOR, HUMAN RECOMBINANT
     Indication: FACTOR VIII DEFICIENCY
     Dosage: 1000 INTERNATIONAL UNIT, QD
     Route: 050
     Dates: start: 20100605

REACTIONS (2)
  - Pain [Recovered/Resolved]
  - Spontaneous haemorrhage [Recovered/Resolved]
